FAERS Safety Report 16091381 (Version 2)
Quarter: 2019Q1

REPORT INFORMATION
  Report Type: Spontaneous
  Country: IT (occurrence: IT)
  Receive Date: 20190319
  Receipt Date: 20190322
  Transmission Date: 20190418
  Serious: Yes (Hospitalization)
  Sender: FDA-Public Use
  Company Number: IT-TEVA-2019-IT-1024768

PATIENT
  Age: 74 Year
  Sex: Female

DRUGS (2)
  1. BRIVIRAC 125 MG COMPRESSE [Interacting]
     Active Substance: BRIVUDINE
     Indication: HERPES ZOSTER
     Dosage: 125 MILLIGRAM DAILY; INTERACTING DRUGS
     Route: 048
     Dates: start: 20190215, end: 20190220
  2. CAPECITABINE. [Suspect]
     Active Substance: CAPECITABINE
     Indication: BREAST CANCER
     Dosage: 100 MILLIGRAM DAILY; INTERACTING DRUGS
     Route: 048

REACTIONS (7)
  - Leukopenia [Not Recovered/Not Resolved]
  - Adverse event [Not Recovered/Not Resolved]
  - Thrombocytopenia [Not Recovered/Not Resolved]
  - Drug interaction [Unknown]
  - Epistaxis [Not Recovered/Not Resolved]
  - Diarrhoea [Not Recovered/Not Resolved]
  - Mucosal inflammation [Not Recovered/Not Resolved]

NARRATIVE: CASE EVENT DATE: 20190224
